FAERS Safety Report 7973875-7 (Version None)
Quarter: 2011Q4

REPORT INFORMATION
  Report Type: 
  Country: None (occurrence: None)
  Receive Date: 20111213
  Receipt Date: 20111205
  Transmission Date: 20120403
  Serious: Yes (Hospitalization)
  Sender: FDA-Public Use
  Company Number: CZ-CEPHALON-2011006169

PATIENT
  Age: 60 Year
  Sex: Male
  Weight: 110 kg

DRUGS (8)
  1. TRAMADOL HYDROCHLORIDE [Concomitant]
  2. PURINOL [Concomitant]
     Dates: end: 20111102
  3. SUMETROLIM [Concomitant]
     Dates: start: 20111021
  4. ZOFRAN [Concomitant]
     Dates: start: 20111021
  5. OMEPRAZOLE [Concomitant]
     Dates: start: 20111021
  6. BORTEZOMIB [Suspect]
     Indication: MULTIPLE MYELOMA
     Route: 042
     Dates: start: 20111021, end: 20111202
  7. BENDAMUSTINE HCL [Suspect]
     Indication: MULTIPLE MYELOMA
     Route: 042
     Dates: start: 20111021
  8. DEXAMETHASONE [Suspect]
     Indication: MULTIPLE MYELOMA
     Dates: start: 20111021, end: 20111102

REACTIONS (1)
  - ILEUS [None]
